FAERS Safety Report 9519545 (Version 1)
Quarter: 2013Q3

REPORT INFORMATION
  Report Type: Spontaneous
  Country: IE (occurrence: IE)
  Receive Date: 20130912
  Receipt Date: 20130912
  Transmission Date: 20140515
  Serious: Yes (Other)
  Sender: FDA-Public Use
  Company Number: IE-WATSON-2013-15716

PATIENT
  Age: 32 Year
  Sex: Male

DRUGS (2)
  1. ROPINIROLE (UNKNOWN) [Suspect]
     Indication: PARKINSON^S DISEASE
     Dosage: 8 MG, DAILY
     Route: 065
  2. SELEGILINE [Concomitant]
     Indication: PARKINSON^S DISEASE
     Dosage: 5 MG, DAILY
     Route: 065

REACTIONS (3)
  - Pathological gambling [Recovered/Resolved]
  - Binge eating [Unknown]
  - Suicidal ideation [Unknown]
